FAERS Safety Report 6817504-4 (Version None)
Quarter: 2010Q3

REPORT INFORMATION
  Report Type: 
  Country: None (occurrence: None)
  Receive Date: 20100706
  Receipt Date: 20100628
  Transmission Date: 20110219
  Serious: Yes (Other)
  Sender: FDA-Public Use
  Company Number: B0661896A

PATIENT
  Age: 88 Year
  Sex: Female

DRUGS (1)
  1. VALTREX [Suspect]
     Indication: HERPES ZOSTER
     Dosage: 3000MG PER DAY
     Route: 048
     Dates: start: 20090727

REACTIONS (10)
  - ABNORMAL BEHAVIOUR [None]
  - ALTERED STATE OF CONSCIOUSNESS [None]
  - ANAEMIA [None]
  - DECREASED APPETITE [None]
  - ENCEPHALOPATHY [None]
  - OLIGURIA [None]
  - RENAL FAILURE ACUTE [None]
  - RENAL IMPAIRMENT [None]
  - SOMNOLENCE [None]
  - SPEECH DISORDER [None]
